FAERS Safety Report 8770919 (Version 1)
Quarter: 2012Q4

REPORT INFORMATION
  Report Type: 
  Country: US (occurrence: US)
  Receive Date: 20120906
  Receipt Date: 20120906
  Transmission Date: 20130627
  Serious: Yes (Hospitalization)
  Sender: FDA-Public Use
  Company Number: US-BAYER-2012-091179

PATIENT
  Age: 20 Year
  Sex: Female
  Weight: 61.5 kg

DRUGS (11)
  1. YAZ [Suspect]
     Indication: MENSTRUAL CYCLE MANAGEMENT
  2. YAZ [Suspect]
     Indication: DYSMENORRHOEA
  3. PANCREASE MT 16 [Concomitant]
     Dosage: 5 with meals and 4 with snacks
  4. ALBUTEROL INHALER [Concomitant]
     Dosage: Two puffs twice daily
  5. MULTIVITAMIN WITH MINERALS [Concomitant]
     Dosage: 1 tablet daily
  6. PULMOZYME [Concomitant]
     Dosage: 2.5 mg, daily
  7. ZANTAC [Concomitant]
     Dosage: one tablet, PRN
  8. ZITHROMAX [Concomitant]
     Dosage: 500 mg on Monday, Wednesday, Friday
  9. TOBI [Concomitant]
     Dosage: Every 28 days
     Route: 045
  10. ACAPELLA [Concomitant]
     Dosage: UNK UNK, BID
  11. VITAMIN K [Concomitant]

REACTIONS (1)
  - Pulmonary embolism [None]
